FAERS Safety Report 15190855 (Version 4)
Quarter: 2018Q4

REPORT INFORMATION
  Report Type: Spontaneous
  Country: US (occurrence: US)
  Receive Date: 20180724
  Receipt Date: 20181219
  Transmission Date: 20190204
  Serious: Yes (Hospitalization, Congenital Anomaly, Other)
  Sender: FDA-Public Use
  Company Number: PHEH2018US030459

PATIENT
  Sex: Male

DRUGS (1)
  1. ZOFRAN [Suspect]
     Active Substance: ONDANSETRON HYDROCHLORIDE
     Indication: FOETAL EXPOSURE DURING PREGNANCY
     Route: 064

REACTIONS (27)
  - Pneumonia [Unknown]
  - Asthma [Unknown]
  - Nausea [Unknown]
  - Tachypnoea [Unknown]
  - Bronchiolitis [Unknown]
  - Decreased appetite [Unknown]
  - Upper respiratory tract infection [Unknown]
  - Pyrexia [Unknown]
  - Ventricular septal defect [Unknown]
  - Dehydration [Unknown]
  - Foetal exposure during pregnancy [Unknown]
  - Pain [Unknown]
  - Emotional distress [Unknown]
  - Vomiting [Unknown]
  - Oropharyngeal pain [Unknown]
  - Productive cough [Unknown]
  - Diarrhoea [Unknown]
  - Heart disease congenital [Unknown]
  - Otitis media acute [Unknown]
  - Rhinorrhoea [Unknown]
  - Fatigue [Unknown]
  - Malaise [Unknown]
  - Anhedonia [Unknown]
  - Gastroenteritis [Unknown]
  - Wheezing [Unknown]
  - Chills [Unknown]
  - Asthenia [Unknown]
